FAERS Safety Report 9301688 (Version 1)
Quarter: 2013Q2

REPORT INFORMATION
  Report Type: Spontaneous
  Country: US (occurrence: None)
  Receive Date: 20130520
  Receipt Date: 20130520
  Transmission Date: 20140414
  Serious: Yes (Life-Threatening, Hospitalization, Disabling)
  Sender: FDA-Public Use
  Company Number: None

PATIENT
  Age: 84 Year
  Sex: Male
  Weight: 77.11 kg

DRUGS (1)
  1. QUINIDINE [Suspect]
     Indication: HEART RATE
     Dosage: 324 MG 1A DAY
     Dates: start: 20120614, end: 20120805

REACTIONS (8)
  - Asthenia [None]
  - Dizziness [None]
  - Hypoaesthesia [None]
  - Hypoaesthesia [None]
  - Dysphagia [None]
  - Constipation [None]
  - Balance disorder [None]
  - Fluid intake reduced [None]
